FAERS Safety Report 11770247 (Version 3)
Quarter: 2015Q4

REPORT INFORMATION
  Report Type: Spontaneous
  Country: US (occurrence: US)
  Receive Date: 20151123
  Receipt Date: 20151204
  Transmission Date: 20160304
  Serious: Yes (Death, Hospitalization)
  Sender: FDA-Public Use
  Company Number: US-ACTELION-A-US2015-127771

PATIENT
  Age: 84 Year
  Sex: Female

DRUGS (5)
  1. NADOLOL. [Concomitant]
     Active Substance: NADOLOL
     Dosage: 10 MG, UNK
  2. PAXIL [Concomitant]
     Active Substance: PAROXETINE HYDROCHLORIDE
     Indication: PRESYNCOPE
     Dosage: 10 MG, UNK
  3. OPSUMIT [Suspect]
     Active Substance: MACITENTAN
     Indication: PULMONARY ARTERIAL HYPERTENSION
     Dosage: 10 MG, UNK
     Route: 048
     Dates: start: 20140819, end: 20151115
  4. AMLODIPINE [Concomitant]
     Active Substance: AMLODIPINE BESYLATE
     Indication: HYPERTENSION
     Dosage: 7.5 MG, UNK
  5. POTASSIUM CHLORIDE. [Concomitant]
     Active Substance: POTASSIUM CHLORIDE
     Dosage: 20 MEQ, UNK

REACTIONS (8)
  - Blood bilirubin [Fatal]
  - Malaise [Unknown]
  - Alanine aminotransferase increased [Fatal]
  - Cardio-respiratory arrest [Fatal]
  - Electrocardiogram ST segment elevation [Fatal]
  - Troponin increased [Fatal]
  - Liver function test abnormal [Fatal]
  - Aspartate aminotransferase increased [Fatal]

NARRATIVE: CASE EVENT DATE: 20151115
